FAERS Safety Report 26119354 (Version 1)
Quarter: 2025Q4

REPORT INFORMATION
  Report Type: Spontaneous
  Country: US (occurrence: US)
  Receive Date: 20251204
  Receipt Date: 20251204
  Transmission Date: 20260117
  Serious: No
  Sender: ACCORD
  Company Number: US-Accord-472334

PATIENT
  Age: 86 Year
  Sex: Female

DRUGS (1)
  1. LEVOTHYROXINE SODIUM [Suspect]
     Active Substance: LEVOTHYROXINE SODIUM
     Indication: Product used for unknown indication
     Dosage: STRENGTH: 88 MCG, ONCE DAILY ABOUT TWO WEEKS AGO (AROUND 11-FEB-2025)
     Route: 048
     Dates: start: 202502

REACTIONS (4)
  - Product solubility abnormal [Unknown]
  - Rash [Unknown]
  - Urticaria [Unknown]
  - Poor quality product administered [Unknown]

NARRATIVE: CASE EVENT DATE: 20250201
